FAERS Safety Report 6347610-2 (Version None)
Quarter: 2009Q3

REPORT INFORMATION
  Report Type: 
  Country: None (occurrence: None)
  Receive Date: 20090910
  Receipt Date: 20090902
  Transmission Date: 20100115
  Serious: Yes (Life-Threatening, Hospitalization)
  Sender: FDA-Public Use
  Company Number: RU-CELGENEUS-251-21880-09061157

PATIENT
  Sex: Female
  Weight: 88 kg

DRUGS (4)
  1. REVLIMID [Suspect]
     Indication: MULTIPLE MYELOMA
     Route: 048
     Dates: start: 20090529, end: 20090605
  2. DEXAMETHASONE [Suspect]
     Indication: MULTIPLE MYELOMA
     Route: 048
     Dates: start: 20090529, end: 20090601
  3. CARDIOMAGNIL [Concomitant]
     Indication: THROMBOSIS PROPHYLAXIS
     Route: 048
     Dates: start: 20090529, end: 20090608
  4. OMEPRAZOLE [Concomitant]
     Route: 048
     Dates: start: 20090520, end: 20090608

REACTIONS (4)
  - CRANIAL NEUROPATHY [None]
  - DIARRHOEA [None]
  - OTITIS MEDIA [None]
  - TREATMENT FAILURE [None]
